FAERS Safety Report 11605379 (Version 2)
Quarter: 2015Q4

REPORT INFORMATION
  Report Type: Spontaneous
  Country: AR (occurrence: AR)
  Receive Date: 20151007
  Receipt Date: 20151027
  Transmission Date: 20160304
  Serious: Yes (Other)
  Sender: FDA-Public Use
  Company Number: AR-PFIZER INC-2015333628

PATIENT
  Age: 79 Year
  Sex: Female

DRUGS (1)
  1. GENOTROPIN [Suspect]
     Active Substance: SOMATROPIN
     Indication: HYPOPITUITARISM
     Dosage: 0.1 TO 0.5MG, DAILY
     Dates: start: 20130409

REACTIONS (1)
  - Urethral polyp [Not Recovered/Not Resolved]

NARRATIVE: CASE EVENT DATE: 201509
